FAERS Safety Report 21878252 (Version 1)
Quarter: 2023Q1

REPORT INFORMATION
  Report Type: Spontaneous
  Country: DE (occurrence: DE)
  Receive Date: 20230118
  Receipt Date: 20230118
  Transmission Date: 20230417
  Serious: Yes (Other)
  Sender: FDA-Public Use
  Company Number: DE-BAXTER-2023BAX010077

PATIENT
  Age: 64 Year
  Sex: Female

DRUGS (10)
  1. PEGFILGRASTIM [Suspect]
     Active Substance: PEGFILGRASTIM
     Indication: Product used for unknown indication
     Dosage: 6 MILLIGRAM, THIRD ADMINISTRATION
     Route: 065
     Dates: start: 20221214
  2. PEGFILGRASTIM [Suspect]
     Active Substance: PEGFILGRASTIM
     Dosage: 6 MILLIGRAM, FIRST ADMINISTRATION
     Route: 065
     Dates: start: 20221109
  3. PEGFILGRASTIM [Suspect]
     Active Substance: PEGFILGRASTIM
     Dosage: 6 MILLIGRAM, SECOND ADMINISTRATION
     Route: 065
     Dates: start: 20221123
  4. CYCLOPHOSPHAMIDE [Suspect]
     Active Substance: CYCLOPHOSPHAMIDE
     Indication: Product used for unknown indication
     Dosage: UNK, FROM 10:12 TO 11:12, 600 MG/M2, ROUTE OF ADMINISTRATION: INFUSION, THIRD ADMINISTRATION
     Route: 050
     Dates: start: 20221213
  5. CYCLOPHOSPHAMIDE [Suspect]
     Active Substance: CYCLOPHOSPHAMIDE
     Dosage: UNK
     Route: 065
  6. CYCLOPHOSPHAMIDE [Suspect]
     Active Substance: CYCLOPHOSPHAMIDE
     Dosage: UNK, FROM 10:00 TO 11:30, 600 MG/M2, ROUTE OF ADMINISTRATION:  INFUSION, SECOND ADMINISTRATION
     Route: 050
     Dates: start: 20221122
  7. CYCLOPHOSPHAMIDE [Suspect]
     Active Substance: CYCLOPHOSPHAMIDE
     Dosage: UNK, FROM 10:32 TO 12:05, 600 MG/M2, ROUTE OF ADMINISTRATION: INFUSION, FIRST ADMINISTRATION
     Route: 050
     Dates: start: 20221108
  8. MESNA [Suspect]
     Active Substance: MESNA
     Indication: Product used for unknown indication
     Dosage: 400 MILLIGRAM, UNK
     Route: 040
     Dates: start: 20221213
  9. MESNA [Suspect]
     Active Substance: MESNA
     Dosage: 400 MILLIGRAM, UNK
     Route: 040
     Dates: start: 20221122
  10. MESNA [Suspect]
     Active Substance: MESNA
     Dosage: 400 MILLIGRAM, UNK
     Route: 040
     Dates: start: 20221108

REACTIONS (3)
  - White blood cell count decreased [Recovering/Resolving]
  - Platelet count decreased [Recovering/Resolving]
  - Haemoglobin decreased [Unknown]
